FAERS Safety Report 24212880 (Version 5)
Quarter: 2024Q4

REPORT INFORMATION
  Report Type: Report from Study
  Country: DE (occurrence: DE)
  Receive Date: 20240815
  Receipt Date: 20241101
  Transmission Date: 20250115
  Serious: Yes (Hospitalization)
  Sender: BRISTOL MYERS SQUIBB
  Company Number: DE-BRISTOL-MYERS SQUIBB COMPANY-2024-119188

PATIENT
  Age: 64 Year
  Sex: Male

DRUGS (34)
  1. OPDIVO [Suspect]
     Active Substance: NIVOLUMAB
     Indication: Non-small cell lung cancer
     Route: 042
     Dates: start: 20240722
  2. YERVOY [Suspect]
     Active Substance: IPILIMUMAB
     Indication: Non-small cell lung cancer
     Route: 042
     Dates: start: 20240722
  3. CARBOPLATIN [Suspect]
     Active Substance: CARBOPLATIN
     Indication: Non-small cell lung cancer
     Route: 042
     Dates: start: 20240722, end: 20240812
  4. METAMIZOL [Concomitant]
     Active Substance: METAMIZOLE SODIUM
     Indication: Product used for unknown indication
  5. PANTOPRAZOLE [Concomitant]
     Active Substance: PANTOPRAZOLE
     Indication: Prophylaxis
  6. HYDROMORPHONE [Concomitant]
     Active Substance: HYDROMORPHONE
     Indication: Product used for unknown indication
  7. HYDROMORPHONE [Concomitant]
     Active Substance: HYDROMORPHONE
     Dates: start: 20240725, end: 20240730
  8. HYDROMORPHONE [Concomitant]
     Active Substance: HYDROMORPHONE
     Dates: start: 20240724, end: 20240725
  9. MCP [Concomitant]
     Active Substance: METOCLOPRAMIDE HYDROCHLORIDE
     Indication: Prophylaxis
  10. ZOPICLONE [Concomitant]
     Active Substance: ZOPICLONE
     Indication: Product used for unknown indication
  11. POLYETHYLENE GLYCOLS [Concomitant]
     Active Substance: POLYETHYLENE GLYCOLS
     Indication: Prophylaxis
  12. POLYETHYLENE GLYCOLS [Concomitant]
     Active Substance: POLYETHYLENE GLYCOLS
     Dates: start: 20240725, end: 20240730
  13. HYDROMORPHONE [Concomitant]
     Active Substance: HYDROMORPHONE
     Indication: Product used for unknown indication
  14. DICLOFENAC [Concomitant]
     Active Substance: DICLOFENAC
     Indication: Product used for unknown indication
  15. LEVOTHYROXINE SODIUM [Concomitant]
     Active Substance: LEVOTHYROXINE SODIUM
     Indication: Adverse event
     Dates: start: 20240722, end: 20240811
  16. DEXAMETHASONE [Concomitant]
     Active Substance: DEXAMETHASONE
     Indication: Prophylaxis
     Dates: start: 20240726, end: 20240729
  17. DEXAMETHASONE [Concomitant]
     Active Substance: DEXAMETHASONE
     Dates: start: 20240722, end: 20240722
  18. DEXAMETHASONE [Concomitant]
     Active Substance: DEXAMETHASONE
     Dates: start: 20240805, end: 20240805
  19. DEXAMETHASONE [Concomitant]
     Active Substance: DEXAMETHASONE
     Dates: start: 20240812, end: 20240812
  20. DEXAMETHASONE [Concomitant]
     Active Substance: DEXAMETHASONE
     Dates: start: 20240819, end: 20240819
  21. DEXAMETHASONE [Concomitant]
     Active Substance: DEXAMETHASONE
     Dates: start: 20240924, end: 20240924
  22. ONDANSETRON [Concomitant]
     Active Substance: ONDANSETRON
     Indication: Prophylaxis
     Dates: start: 20240715
  23. ONDANSETRON [Concomitant]
     Active Substance: ONDANSETRON
     Dates: start: 20240722, end: 20240722
  24. ONDANSETRON [Concomitant]
     Active Substance: ONDANSETRON
     Dates: start: 20240725, end: 20240730
  25. ONDANSETRON [Concomitant]
     Active Substance: ONDANSETRON
     Dates: start: 20240730, end: 20240730
  26. ONDANSETRON [Concomitant]
     Active Substance: ONDANSETRON
     Dates: start: 20240805, end: 20240805
  27. ONDANSETRON [Concomitant]
     Active Substance: ONDANSETRON
     Dates: start: 20240812, end: 20240812
  28. ONDANSETRON [Concomitant]
     Active Substance: ONDANSETRON
     Dates: start: 20240819, end: 20240819
  29. ONDANSETRON [Concomitant]
     Active Substance: ONDANSETRON
     Dates: start: 20240924, end: 20240924
  30. JONOSTERIL [CALCIUM ACETATE;MAGNESIUM ACETATE TETRAHYDRATE;POTASSIUM A [Concomitant]
     Indication: Product used for unknown indication
     Dates: start: 20240724, end: 20240730
  31. HYDROMORPHONE HCL [Concomitant]
     Active Substance: HYDROMORPHONE HYDROCHLORIDE
     Indication: Product used for unknown indication
     Dates: start: 20240724, end: 20240724
  32. METOCLOPRAMIDE HYDROCHLORIDE [Concomitant]
     Active Substance: METOCLOPRAMIDE HYDROCHLORIDE
     Indication: Product used for unknown indication
     Dates: start: 20240724, end: 20240725
  33. SODIUM PICOSULFATE [Concomitant]
     Active Substance: SODIUM PICOSULFATE
     Indication: Product used for unknown indication
     Dates: start: 20240725, end: 20240725
  34. FRESUBIN [CAFFEINE;CARBOHYDRATES NOS;FATS NOS;FIBRE, DIETARY;MINERALS [Concomitant]
     Indication: Product used for unknown indication
     Dates: start: 20240729, end: 20240730

REACTIONS (10)
  - Dehydration [Recovered/Resolved]
  - Vomiting [Recovered/Resolved]
  - Constipation [Recovered/Resolved]
  - General physical health deterioration [Recovering/Resolving]
  - C-reactive protein increased [Recovering/Resolving]
  - Anaemia [Recovering/Resolving]
  - Pleuritic pain [Recovering/Resolving]
  - Duodenitis [Recovering/Resolving]
  - Gastritis [Recovering/Resolving]
  - Fatigue [Recovering/Resolving]

NARRATIVE: CASE EVENT DATE: 20240701
